FAERS Safety Report 8571880 (Version 2)
Quarter: 2013Q2

REPORT INFORMATION
  Report Type: Spontaneous
  Country: US (occurrence: US)
  Receive Date: 20120521
  Receipt Date: 20130522
  Transmission Date: 20140414
  Serious: No
  Sender: FDA-Public Use
  Company Number: US-ASTRAZENECA-2011SE16989

PATIENT
  Age: 51 Year
  Sex: Female
  Weight: 84.4 kg

DRUGS (15)
  1. SEROQUEL [Suspect]
     Indication: POST-TRAUMATIC STRESS DISORDER
     Route: 048
     Dates: start: 2003
  2. SEROQUEL [Suspect]
     Indication: BIPOLAR DISORDER
     Route: 048
     Dates: start: 2003
  3. SEROQUEL [Suspect]
     Indication: MOOD SWINGS
     Route: 048
     Dates: start: 2003
  4. SEROQUEL [Suspect]
     Indication: SLEEP DISORDER
     Route: 048
     Dates: start: 2003
  5. SEROQUEL [Suspect]
     Indication: POST-TRAUMATIC STRESS DISORDER
     Route: 048
  6. SEROQUEL [Suspect]
     Indication: BIPOLAR DISORDER
     Route: 048
  7. SEROQUEL [Suspect]
     Indication: MOOD SWINGS
     Route: 048
  8. SEROQUEL [Suspect]
     Indication: SLEEP DISORDER
     Route: 048
  9. SEROQUEL [Suspect]
     Indication: POST-TRAUMATIC STRESS DISORDER
     Route: 048
  10. SEROQUEL [Suspect]
     Indication: BIPOLAR DISORDER
     Route: 048
  11. SEROQUEL [Suspect]
     Indication: MOOD SWINGS
     Route: 048
  12. SEROQUEL [Suspect]
     Indication: SLEEP DISORDER
     Route: 048
  13. AMBIEN [Concomitant]
     Indication: SLEEP DISORDER
  14. GEODON [Concomitant]
  15. LAMICTAL [Concomitant]
     Indication: MOOD SWINGS

REACTIONS (6)
  - Abdominal pain upper [Unknown]
  - Visual acuity reduced [Unknown]
  - Insomnia [Unknown]
  - Weight increased [Unknown]
  - Dyskinesia [Unknown]
  - Intentional drug misuse [Unknown]
